FAERS Safety Report 6125986-9 (Version None)
Quarter: 2009Q1

REPORT INFORMATION
  Report Type: 
  Country: None (occurrence: None)
  Receive Date: 20090320
  Receipt Date: 20090313
  Transmission Date: 20090719
  Serious: Yes (Other)
  Sender: FDA-Public Use
  Company Number: US-ELI_LILLY_AND_COMPANY-US200902004493

PATIENT
  Sex: Female
  Weight: 90.703 kg

DRUGS (1)
  1. BYETTA [Suspect]
     Dosage: 10 G, 2/D
     Dates: start: 20060601, end: 20080919

REACTIONS (6)
  - BACK PAIN [None]
  - BLOOD PRESSURE DECREASED [None]
  - LIPASE INCREASED [None]
  - NON-CARDIAC CHEST PAIN [None]
  - PANCREATITIS [None]
  - SHOCK [None]
